FAERS Safety Report 5446074-0 (Version None)
Quarter: 2007Q3

REPORT INFORMATION
  Report Type: 
  Country: None (occurrence: None)
  Receive Date: 20070907
  Receipt Date: 20070906
  Transmission Date: 20080115
  Serious: Yes (Hospitalization)
  Sender: FDA-Public Use
  Company Number: US-BRISTOL-MYERS SQUIBB COMPANY-13900303

PATIENT
  Age: 69 Year
  Sex: Male

DRUGS (12)
  1. CARBOPLATIN [Suspect]
     Indication: LUNG NEOPLASM MALIGNANT
     Dosage: 390 MG ON DAY 1 OF A 21 DAY CYCLE.
     Route: 042
     Dates: start: 20070314, end: 20070627
  2. PACLITAXEL [Suspect]
     Indication: LUNG NEOPLASM MALIGNANT
     Dosage: 222 MG ON DAY 1 OF A 21 DAY CYCLE.
     Route: 042
     Dates: start: 20070314, end: 20070627
  3. PF-3512676 [Suspect]
     Indication: LUNG NEOPLASM MALIGNANT
     Dosage: DAYS 8 AND 15 OF 21 DAY CYCLE.
     Route: 058
     Dates: start: 20070321, end: 20070614
  4. NEXIUM [Concomitant]
     Route: 048
     Dates: start: 20070406
  5. ASPIRIN [Concomitant]
     Route: 048
     Dates: start: 19970101
  6. COLOXYL + SENNA [Concomitant]
     Route: 048
     Dates: start: 20070307
  7. TEMAZEPAM [Concomitant]
     Route: 048
     Dates: start: 20070415
  8. METOCLOPRAMIDE [Concomitant]
     Route: 048
     Dates: start: 20070314, end: 20070708
  9. OXYCONTIN [Concomitant]
     Route: 048
     Dates: start: 20070515
  10. LACTULOSE [Concomitant]
     Route: 048
     Dates: start: 20070307
  11. PARACETAMOL [Concomitant]
     Route: 048
     Dates: start: 20070515
  12. DUROGESIC [Concomitant]
     Route: 061
     Dates: start: 20070531

REACTIONS (3)
  - DEHYDRATION [None]
  - NAUSEA [None]
  - ORAL INTAKE REDUCED [None]
